FAERS Safety Report 7194335-X (Version None)
Quarter: 2010Q4

REPORT INFORMATION
  Report Type: 
  Country: None (occurrence: None)
  Receive Date: 20101223
  Receipt Date: 20101213
  Transmission Date: 20110411
  Serious: Yes (Other)
  Sender: FDA-Public Use
  Company Number: JP-ELI_LILLY_AND_COMPANY-JP201012003218

PATIENT
  Age: 91 Year
  Sex: Female

DRUGS (2)
  1. ZYPREXA [Suspect]
     Indication: BEHAVIOURAL AND PSYCHIATRIC SYMPTOMS OF DEMENTIA
     Dosage: 5 MG, DAILY (1/D)
     Route: 048
     Dates: start: 20101210, end: 20101212
  2. SEROQUEL [Concomitant]
     Indication: BEHAVIOURAL AND PSYCHIATRIC SYMPTOMS OF DEMENTIA
     Dosage: 25 MG, DAILY (1/D)
     Route: 048

REACTIONS (3)
  - LOSS OF CONSCIOUSNESS [None]
  - OFF LABEL USE [None]
  - RENAL IMPAIRMENT [None]
